FAERS Safety Report 13818736 (Version 1)
Quarter: 2017Q3

REPORT INFORMATION
  Report Type: Spontaneous
  Country: US (occurrence: US)
  Receive Date: 20170731
  Receipt Date: 20170731
  Transmission Date: 20171127
  Serious: Yes (Hospitalization)
  Sender: FDA-Public Use
  Company Number: US-CELGENEUS-USA-20170709308

PATIENT
  Age: 70 Year
  Sex: Female
  Weight: 74 kg

DRUGS (8)
  1. AMILORIDE HCL [Concomitant]
     Active Substance: AMILORIDE HYDROCHLORIDE
     Indication: HYPERTENSION
     Dosage: 5/50 MG
     Route: 065
  2. NAPROXEN. [Concomitant]
     Active Substance: NAPROXEN
     Indication: PAIN
     Route: 065
     Dates: start: 20170701
  3. REVLIMID [Suspect]
     Active Substance: LENALIDOMIDE
     Dosage: 15 MILLIGRAM
     Route: 048
     Dates: start: 20170606
  4. REVLIMID [Suspect]
     Active Substance: LENALIDOMIDE
     Indication: PLASMA CELL MYELOMA
     Dosage: 25 MILLIGRAM
     Route: 048
     Dates: start: 20170526
  5. VELCADE [Concomitant]
     Active Substance: BORTEZOMIB
     Indication: PRODUCT USED FOR UNKNOWN INDICATION
     Route: 065
  6. DEXAMETHASONE. [Concomitant]
     Active Substance: DEXAMETHASONE
     Indication: PLASMA CELL MYELOMA
     Route: 065
  7. LACTOSE [Concomitant]
     Active Substance: LACTOSE
     Indication: CONSTIPATION
     Dosage: 10GM/15ML
     Route: 065
  8. EPOGEN [Concomitant]
     Active Substance: ERYTHROPOIETIN
     Indication: HAEMOGLOBIN DECREASED
     Dosage: 20,000 UNIT
     Route: 058
     Dates: start: 20170710

REACTIONS (6)
  - Constipation [Not Recovered/Not Resolved]
  - Pain in extremity [Not Recovered/Not Resolved]
  - Blood creatinine increased [Not Recovered/Not Resolved]
  - Weight decreased [Not Recovered/Not Resolved]
  - Arthralgia [Not Recovered/Not Resolved]
  - Haemoglobin decreased [Not Recovered/Not Resolved]

NARRATIVE: CASE EVENT DATE: 2017
